FAERS Safety Report 5085957-0 (Version None)
Quarter: 2006Q3

REPORT INFORMATION
  Report Type: 
  Country: None (occurrence: None)
  Receive Date: 20060822
  Receipt Date: 20060621
  Transmission Date: 20061208
  Serious: Yes (Hospitalization, Other)
  Sender: FDA-Public Use
  Company Number: JP-MERCK-0606USA05688

PATIENT
  Age: 35 Year
  Sex: Female
  Weight: 40 kg

DRUGS (7)
  1. ALDOMET [Suspect]
     Indication: HYPERTENSION
     Route: 048
     Dates: start: 20050811, end: 20050923
  2. ALDOMET [Suspect]
     Route: 048
     Dates: start: 20031219, end: 20050101
  3. ALDOMET [Suspect]
     Route: 048
     Dates: start: 20050101, end: 20050807
  4. LANDEL [Concomitant]
     Indication: HYPERTENSION
     Route: 048
     Dates: start: 20050804
  5. AMLODIN [Concomitant]
     Indication: HYPERTENSION
     Route: 048
     Dates: start: 20050804, end: 20050922
  6. [THERAPY UNSPECIFIED] [Concomitant]
     Indication: ZINC DEFICIENCY
     Route: 048
     Dates: start: 20050807, end: 20060207
  7. SODIUM BICARBONATE [Concomitant]
     Indication: ACID BASE BALANCE ABNORMAL
     Route: 048
     Dates: start: 20050807, end: 20051121

REACTIONS (10)
  - BLOOD PRESSURE INCREASED [None]
  - BLOOD URIC ACID INCREASED [None]
  - DRUG EXPOSURE DURING PREGNANCY [None]
  - HAEMODIALYSIS [None]
  - HAEMOLYTIC ANAEMIA [None]
  - IRON DEFICIENCY ANAEMIA [None]
  - NEPHROGENIC ANAEMIA [None]
  - POLYHYDRAMNIOS [None]
  - PREGNANCY [None]
  - RENAL FAILURE [None]
